FAERS Safety Report 17102634 (Version 2)
Quarter: 2020Q1

REPORT INFORMATION
  Report Type: Spontaneous
  Country: US (occurrence: US)
  Receive Date: 20191202
  Receipt Date: 20200207
  Transmission Date: 20200409
  Serious: No
  Sender: FDA-Public Use
  Company Number: US-GLAXOSMITHKLINE-US2019GSK213731

PATIENT
  Age: 30 Year
  Sex: Female
  Weight: 58.5 kg

DRUGS (14)
  1. NUCALA [Suspect]
     Active Substance: MEPOLIZUMAB
     Dosage: 300 MG
     Route: 065
     Dates: start: 201912
  2. NUCALA [Suspect]
     Active Substance: MEPOLIZUMAB
     Dosage: 100 MG
     Route: 065
     Dates: start: 201902
  3. NUCALA [Suspect]
     Active Substance: MEPOLIZUMAB
     Dosage: 100 MG
     Route: 065
     Dates: start: 201903
  4. NUCALA [Suspect]
     Active Substance: MEPOLIZUMAB
     Dosage: 100 MG
     Route: 065
     Dates: start: 201905
  5. NUCALA [Suspect]
     Active Substance: MEPOLIZUMAB
     Dosage: 300 MG
     Route: 065
     Dates: start: 201909
  6. NUCALA [Suspect]
     Active Substance: MEPOLIZUMAB
     Dosage: 300 MG
     Route: 065
     Dates: start: 201906
  7. NUCALA [Suspect]
     Active Substance: MEPOLIZUMAB
     Dosage: 300 MG
     Route: 065
     Dates: start: 201908
  8. NUCALA [Suspect]
     Active Substance: MEPOLIZUMAB
     Dosage: UNK (3 SHOTS PER MONTH)
     Route: 065
     Dates: start: 2019
  9. NUCALA [Suspect]
     Active Substance: MEPOLIZUMAB
     Dosage: 300 MG
     Route: 065
     Dates: start: 201911
  10. NUCALA [Suspect]
     Active Substance: MEPOLIZUMAB
     Dosage: 100 MG
     Route: 065
     Dates: start: 201901
  11. NUCALA [Suspect]
     Active Substance: MEPOLIZUMAB
     Dosage: 300 MG
     Route: 065
     Dates: start: 201910
  12. NUCALA [Suspect]
     Active Substance: MEPOLIZUMAB
     Dosage: 300 MG
     Route: 065
     Dates: start: 201907
  13. NUCALA [Suspect]
     Active Substance: MEPOLIZUMAB
     Indication: PRODUCT USED FOR UNKNOWN INDICATION
     Dosage: UNK (1 SHOT PER MONTH)
     Route: 065
     Dates: start: 201901
  14. NUCALA [Suspect]
     Active Substance: MEPOLIZUMAB
     Dosage: 100 MG
     Route: 065
     Dates: start: 201904

REACTIONS (2)
  - Back pain [Not Recovered/Not Resolved]
  - Spinal fusion acquired [Unknown]

NARRATIVE: CASE EVENT DATE: 20190131
